FAERS Safety Report 10678391 (Version 2)
Quarter: 2014Q4

REPORT INFORMATION
  Report Type: Spontaneous
  Country: US (occurrence: US)
  Receive Date: 20141229
  Receipt Date: 20141229
  Transmission Date: 20150529
  Serious: Yes (Hospitalization)
  Sender: FDA-Public Use
  Company Number: US-JNJFOC-20141115042

PATIENT
  Sex: Female

DRUGS (12)
  1. REMICADE [Suspect]
     Active Substance: INFLIXIMAB
     Indication: CROHN^S DISEASE
     Dosage: ONCE EVERY 5-6 WEEKS BASED ON NECESSITY
     Route: 042
     Dates: start: 201310
  2. REMICADE [Suspect]
     Active Substance: INFLIXIMAB
     Indication: COLITIS ULCERATIVE
     Dosage: ONCE EVERY 5-6 WEEKS BASED ON NECESSITY
     Route: 042
     Dates: start: 201405
  3. REMICADE [Suspect]
     Active Substance: INFLIXIMAB
     Indication: COLITIS ULCERATIVE
     Dosage: ONCE EVERY 5-6 WEEKS BASED ON NECESSITY
     Route: 042
  4. REMICADE [Suspect]
     Active Substance: INFLIXIMAB
     Indication: COLITIS ULCERATIVE
     Dosage: ONCE EVERY 5-6 WEEKS BASED ON NECESSITY
     Route: 042
     Dates: start: 201310
  5. REMICADE [Suspect]
     Active Substance: INFLIXIMAB
     Indication: CROHN^S DISEASE
     Dosage: ONCE EVERY 5-6 WEEKS BASED ON NECESSITY
     Route: 042
  6. REMICADE [Suspect]
     Active Substance: INFLIXIMAB
     Indication: ANKYLOSING SPONDYLITIS
     Dosage: ONCE EVERY 5-6 WEEKS BASED ON NECESSITY
     Route: 042
     Dates: start: 201405
  7. REMICADE [Suspect]
     Active Substance: INFLIXIMAB
     Indication: ANKYLOSING SPONDYLITIS
     Dosage: ONCE EVERY 5-6 WEEKS BASED ON NECESSITY
     Route: 042
  8. REMICADE [Suspect]
     Active Substance: INFLIXIMAB
     Indication: ANKYLOSING SPONDYLITIS
     Dosage: ONCE EVERY 5-6 WEEKS BASED ON NECESSITY
     Route: 042
     Dates: start: 201310
  9. REMICADE [Suspect]
     Active Substance: INFLIXIMAB
     Indication: COLITIS ULCERATIVE
     Dosage: ONCE EVERY 5-6 WEEKS BASED ON NECESSITY
     Route: 042
  10. REMICADE [Suspect]
     Active Substance: INFLIXIMAB
     Indication: CROHN^S DISEASE
     Dosage: ONCE EVERY 5-6 WEEKS BASED ON NECESSITY
     Route: 042
  11. REMICADE [Suspect]
     Active Substance: INFLIXIMAB
     Indication: CROHN^S DISEASE
     Dosage: ONCE EVERY 5-6 WEEKS BASED ON NECESSITY
     Route: 042
     Dates: start: 201405
  12. REMICADE [Suspect]
     Active Substance: INFLIXIMAB
     Indication: ANKYLOSING SPONDYLITIS
     Dosage: ONCE EVERY 5-6 WEEKS BASED ON NECESSITY
     Route: 042

REACTIONS (5)
  - Underdose [Unknown]
  - Crohn^s disease [Unknown]
  - Malaise [Unknown]
  - Gastric haemorrhage [Unknown]
  - Ankylosing spondylitis [Unknown]

NARRATIVE: CASE EVENT DATE: 201405
